FAERS Safety Report 6825118-5 (Version None)
Quarter: 2010Q3

REPORT INFORMATION
  Report Type: 
  Country: None (occurrence: None)
  Receive Date: 20100708
  Receipt Date: 20070102
  Transmission Date: 20110219
  Serious: No
  Sender: FDA-Public Use
  Company Number: US-PFIZER INC-2007001515

PATIENT
  Sex: Male
  Weight: 88.45 kg

DRUGS (10)
  1. CHANTIX [Suspect]
     Indication: SMOKING CESSATION THERAPY
     Dates: start: 20061201
  2. NICOTINE [Interacting]
     Indication: SMOKING CESSATION THERAPY
  3. LIPITOR [Concomitant]
  4. TRAMADOL [Concomitant]
  5. METOPROLOL [Concomitant]
  6. ALTACE [Concomitant]
  7. COMBIVENT [Concomitant]
     Route: 055
  8. GLIMEPIRIDE [Concomitant]
  9. CLOPIDOGREL [Concomitant]
  10. VITAMINS [Concomitant]

REACTIONS (3)
  - DRUG INTERACTION [None]
  - HYPERGLYCAEMIA [None]
  - NAUSEA [None]
